FAERS Safety Report 13596985 (Version 2)
Quarter: 2017Q3

REPORT INFORMATION
  Report Type: Spontaneous
  Country: JP (occurrence: JP)
  Receive Date: 20170531
  Receipt Date: 20170711
  Transmission Date: 20171127
  Serious: Yes (Hospitalization, Other)
  Sender: FDA-Public Use
  Company Number: JP-ROCHE-1916517

PATIENT
  Age: 65 Year
  Sex: Female
  Weight: 42 kg

DRUGS (6)
  1. GEMCITABINE [Concomitant]
     Active Substance: GEMCITABINE\GEMCITABINE HYDROCHLORIDE
     Indication: OVARIAN CANCER
     Dosage: DOSE PERIOD: 1 COURSE 21 DAYS.
     Route: 041
     Dates: start: 20161201
  2. DECADRON [Concomitant]
     Active Substance: DEXAMETHASONE
     Dosage: TAKEN FOR CHEMICAL TREATMENT AND DAY2, DAY3.
     Route: 048
  3. CARBOPLATIN. [Concomitant]
     Active Substance: CARBOPLATIN
     Indication: OVARIAN CANCER
     Dosage: ONCE DOSAGE: AUC4?DOSE PERIOD: 1 COURSE 21 DAYS.
     Route: 041
     Dates: start: 20161201
  4. DEXART [Concomitant]
     Active Substance: DEXAMETHASONE SODIUM PHOSPHATE
     Dosage: WHEN CHEMICAL TREATMENT: (1.65) X 1 A DAY8.
     Route: 065
  5. DEXART [Concomitant]
     Active Substance: DEXAMETHASONE SODIUM PHOSPHATE
     Dosage: WHEN CHEMICAL TREATMENT: (1.65) X 3 A DAY1.
     Route: 065
  6. AVASTIN [Suspect]
     Active Substance: BEVACIZUMAB
     Indication: OVARIAN CANCER
     Route: 041
     Dates: start: 20161201, end: 20170112

REACTIONS (6)
  - Decreased appetite [Unknown]
  - Cough [Recovered/Resolved]
  - Pyrexia [Unknown]
  - Large intestine perforation [Recovered/Resolved]
  - Tumour necrosis [Unknown]
  - Dyspnoea [Recovered/Resolved]

NARRATIVE: CASE EVENT DATE: 20170128
